FAERS Safety Report 4528562-4 (Version None)
Quarter: 2004Q4

REPORT INFORMATION
  Report Type: 
  Country: None (occurrence: None)
  Receive Date: 20041216
  Receipt Date: 20041206
  Transmission Date: 20050328
  Serious: Yes (Other)
  Sender: FDA-Public Use
  Company Number: PHBS2004IT16451

PATIENT
  Age: 65 Year
  Sex: Male

DRUGS (1)
  1. IMATINIB [Suspect]
     Indication: CHRONIC MYELOID LEUKAEMIA

REACTIONS (6)
  - LEUKOPENIA [None]
  - LICHEN PLANUS [None]
  - PRURITUS [None]
  - RASH PAPULAR [None]
  - SKIN HYPERPIGMENTATION [None]
  - THROMBOCYTOPENIA [None]
